FAERS Safety Report 7632849-6 (Version None)
Quarter: 2011Q3

REPORT INFORMATION
  Report Type: 
  Country: None (occurrence: None)
  Receive Date: 20110725
  Receipt Date: 20110711
  Transmission Date: 20111222
  Serious: Yes (Other)
  Sender: FDA-Public Use
  Company Number: PHHY2011BR62712

PATIENT
  Sex: Female
  Weight: 95 kg

DRUGS (9)
  1. OMEPRAZOLE [Concomitant]
     Indication: GASTRITIS
     Dosage: 20 MG, UNK
     Route: 048
  2. LOSARTAN POTASSIUM [Concomitant]
     Dosage: 50 MG, BID
     Route: 048
  3. HYDROCHLOROTHIAZIDE [Concomitant]
     Indication: HYPERTENSION
     Dosage: 25 MG, UNK
     Route: 048
  4. FORMOTEROL FUMARATE [Suspect]
     Indication: ASTHMA
     Dosage: 1 DF, BID
  5. KETOTIFEN [Concomitant]
     Indication: HYPERSENSITIVITY
     Dosage: 1 MG, UNK
     Route: 048
  6. BROMAZEPAM [Concomitant]
     Indication: ANXIETY
     Dosage: 3 MG, UNK
     Route: 048
  7. LOSARTAN POTASSIUM [Concomitant]
     Indication: HYPERTENSION
     Dosage: 50 MG, UNK
     Route: 048
  8. HYDROXYZINE HCL [Concomitant]
     Indication: HYPERSENSITIVITY
     Dosage: 1 MG, UNK
     Route: 048
  9. LYRICA [Concomitant]
     Indication: PAIN IN EXTREMITY
     Dosage: 1 DF, UNK

REACTIONS (5)
  - BONE PAIN [None]
  - GAIT DISTURBANCE [None]
  - BLOOD PRESSURE INCREASED [None]
  - INTERVERTEBRAL DISC PROTRUSION [None]
  - SPINAL DISORDER [None]
